FAERS Safety Report 9012769 (Version 2)
Quarter: 2013Q1

REPORT INFORMATION
  Report Type: Spontaneous
  Country: ES (occurrence: ES)
  Receive Date: 20130114
  Receipt Date: 20130201
  Transmission Date: 20140127
  Serious: Yes (Death, Life-Threatening, Hospitalization)
  Sender: FDA-Public Use
  Company Number: ES-ROCHE-1178900

PATIENT
  Age: 67 Year
  Sex: Female

DRUGS (9)
  1. PEGASYS [Suspect]
     Indication: CHRONIC HEPATITIS C
     Route: 058
     Dates: start: 20121019, end: 20121207
  2. COPEGUS [Suspect]
     Indication: CHRONIC HEPATITIS C
     Route: 048
     Dates: start: 20121019, end: 20121207
  3. INCIVO [Suspect]
     Indication: CHRONIC HEPATITIS C
     Route: 048
     Dates: start: 20121019, end: 20121207
  4. ATENOLOL [Concomitant]
  5. LORAZEPAM [Concomitant]
  6. EPROSARTAN MESILATE/HYDROCHLOROTHIAZIDE [Concomitant]
  7. LEVOTHROID [Concomitant]
     Route: 065
  8. OMEPRAZOLE [Concomitant]
  9. METFORMIN [Concomitant]
     Route: 065

REACTIONS (4)
  - Septic shock [Fatal]
  - Renal disorder [Fatal]
  - Pancytopenia [Fatal]
  - Anaemia [Recovering/Resolving]
